FAERS Safety Report 23318992 (Version 1)
Quarter: 2023Q4

REPORT INFORMATION
  Report Type: Spontaneous
  Country: IT (occurrence: IT)
  Receive Date: 20231220
  Receipt Date: 20231220
  Transmission Date: 20240109
  Serious: Yes (Other)
  Sender: FDA-Public Use
  Company Number: IT-BIOVITRUM-2023-IT-020638

PATIENT
  Age: 10 Year
  Sex: Female

DRUGS (4)
  1. ANAKINRA [Suspect]
     Active Substance: ANAKINRA
     Indication: Still^s disease
  2. ANAKINRA [Suspect]
     Active Substance: ANAKINRA
     Indication: Haemophagocytic lymphohistiocytosis
  3. ANAKINRA [Suspect]
     Active Substance: ANAKINRA
     Route: 051
  4. ANAKINRA [Suspect]
     Active Substance: ANAKINRA
     Route: 058

REACTIONS (2)
  - Drug reaction with eosinophilia and systemic symptoms [Unknown]
  - Off label use [Unknown]
